FAERS Safety Report 22173105 (Version 2)
Quarter: 2023Q2

REPORT INFORMATION
  Report Type: Spontaneous
  Country: JP (occurrence: None)
  Receive Date: 20230404
  Receipt Date: 20230530
  Transmission Date: 20230722
  Serious: Yes (Life-Threatening)
  Sender: FDA-Public Use
  Company Number: 2023A077211

PATIENT
  Age: 77 Year
  Sex: Male

DRUGS (7)
  1. IMFINZI [Suspect]
     Active Substance: DURVALUMAB
     Indication: Small cell lung cancer
     Dosage: DOSE UNKNOWN
     Route: 041
  2. IMFINZI [Suspect]
     Active Substance: DURVALUMAB
     Indication: Small cell lung cancer
     Dosage: DOSE UNKNOWN
     Route: 041
  3. CARBOPLATIN [Concomitant]
     Active Substance: CARBOPLATIN
     Indication: Small cell lung cancer
     Dosage: AUC 5
  4. ETOPOSIDE [Concomitant]
     Active Substance: ETOPOSIDE
     Indication: Small cell lung cancer
     Dosage: ON DAYS 1, 2, AND 3 OF EACH CYCLE
  5. PALONOSETRON [Concomitant]
     Active Substance: PALONOSETRON
     Dosage: DOSE UNKNOWN
  6. DEXAMETHASONE SODIUM PHOSPHATE [Concomitant]
     Active Substance: DEXAMETHASONE SODIUM PHOSPHATE
  7. APREPITANT [Concomitant]
     Active Substance: APREPITANT
     Dosage: DOSE UNKNOWN

REACTIONS (1)
  - Neutrophil count decreased [Unknown]
